FAERS Safety Report 9744021 (Version 5)
Quarter: 2014Q1

REPORT INFORMATION
  Report Type: Report from Study
  Country: US (occurrence: US)
  Receive Date: 20131210
  Receipt Date: 20140218
  Transmission Date: 20141002
  Serious: Yes (Hospitalization)
  Sender: FDA-Public Use
  Company Number: US-GLAXOSMITHKLINE-A1052115A

PATIENT
  Age: 58 Year
  Sex: Female
  Weight: 56.2 kg

DRUGS (2)
  1. GSK2141795 [Suspect]
     Indication: BREAST CANCER
     Dosage: 50MG PER DAY
     Route: 048
     Dates: start: 20131104
  2. TRAMETINIB [Suspect]
     Indication: NEOPLASM
     Dosage: 1.5MG PER DAY
     Route: 048
     Dates: start: 20131104

REACTIONS (3)
  - Stomatitis [Recovered/Resolved]
  - Diarrhoea [Recovered/Resolved]
  - Pyrexia [Recovered/Resolved]
